FAERS Safety Report 5005454-8 (Version None)
Quarter: 2006Q2

REPORT INFORMATION
  Report Type: 
  Country: None (occurrence: None)
  Receive Date: 20060518
  Receipt Date: 20060323
  Transmission Date: 20061013
  Serious: Yes (Hospitalization, Disabling)
  Sender: FDA-Public Use
  Company Number: US-MERCK-0603USA04021

PATIENT
  Age: 66 Year
  Sex: Female
  Weight: 66 kg

DRUGS (11)
  1. PRINZIDE [Concomitant]
     Route: 065
  2. VIOXX [Suspect]
     Indication: ARTHRITIS
     Route: 048
     Dates: start: 20010807, end: 20040910
  3. VIOXX [Suspect]
     Indication: BACK PAIN
     Route: 048
     Dates: start: 20010807, end: 20040910
  4. ATENOLOL [Concomitant]
     Route: 065
  5. SEREVENT [Concomitant]
     Route: 065
  6. FLOVENT [Concomitant]
     Route: 065
  7. MEPREDNISONE [Concomitant]
     Route: 065
  8. PRINIVIL [Concomitant]
     Route: 065
  9. ZITHROMAX [Concomitant]
     Route: 065
  10. ZYRTEC [Concomitant]
     Route: 065
  11. [THERAPY UNSPECIFIED] [Concomitant]
     Route: 065

REACTIONS (5)
  - CARDIAC MURMUR [None]
  - CEREBROVASCULAR ACCIDENT [None]
  - HYPERCHOLESTEROLAEMIA [None]
  - LACUNAR INFARCTION [None]
  - NECK PAIN [None]
